FAERS Safety Report 17301046 (Version 1)
Quarter: 2020Q1

REPORT INFORMATION
  Report Type: Report from Study
  Country: CA (occurrence: CA)
  Receive Date: 20200122
  Receipt Date: 20200122
  Transmission Date: 20200409
  Serious: Yes (Other)
  Sender: FDA-Public Use
  Company Number: CA-PFIZER INC-2020027535

PATIENT
  Age: 76 Year
  Sex: Female

DRUGS (13)
  1. HYDROCHLOROTHIAZIDE. [Concomitant]
     Active Substance: HYDROCHLOROTHIAZIDE
     Dosage: UNK UNK, 1X/DAY
  2. RITUXAN [Suspect]
     Active Substance: RITUXIMAB
     Indication: RHEUMATOID ARTHRITIS
     Dosage: 1000 MG, UNK
     Route: 042
  3. SOLU-CORTEF [Concomitant]
     Active Substance: HYDROCORTISONE SODIUM SUCCINATE
     Indication: PREMEDICATION
     Dosage: 100 MG, UNK
     Route: 042
  4. DOCOSAHEXAENOIC ACID/EICOSAPENTAENOIC ACID [Concomitant]
     Active Substance: DOCONEXENT\ICOSAPENT
  5. METOPROLOL. [Concomitant]
     Active Substance: METOPROLOL
     Dosage: 25 MG, 2X/DAY
  6. ACETAMINOPHEN. [Concomitant]
     Active Substance: ACETAMINOPHEN
     Dosage: 650 MG, UNK
     Route: 048
  7. PLAQUENIL [Concomitant]
     Active Substance: HYDROXYCHLOROQUINE SULFATE
     Dosage: 200 MG, 2X/DAY
  8. METHOTREXATE SODIUM. [Suspect]
     Active Substance: METHOTREXATE SODIUM
     Dosage: 10 MG, WEEKLY
  9. DIPHENHYDRAMINE HYDROCHLORIDE. [Concomitant]
     Active Substance: DIPHENHYDRAMINE HYDROCHLORIDE
     Indication: PREMEDICATION
     Dosage: 50 MG, UNK
     Route: 048
  10. WARFARIN [Concomitant]
     Active Substance: WARFARIN
     Dosage: UNK, 1X/DAY
  11. METHYLPREDNISOLONE. [Concomitant]
     Active Substance: METHYLPREDNISOLONE
     Indication: PREMEDICATION
     Dosage: 100 MG, UNK
     Route: 042
  12. RITUXAN [Suspect]
     Active Substance: RITUXIMAB
     Indication: LYMPHOMA
     Dosage: UNK
     Route: 042
  13. ACETAMINOPHEN. [Concomitant]
     Active Substance: ACETAMINOPHEN
     Indication: PREMEDICATION
     Dosage: 1000 MG, UNK

REACTIONS (11)
  - Productive cough [Not Recovered/Not Resolved]
  - Malaise [Not Recovered/Not Resolved]
  - Lung disorder [Not Recovered/Not Resolved]
  - Nausea [Not Recovered/Not Resolved]
  - Spinal compression fracture [Not Recovered/Not Resolved]
  - Rales [Not Recovered/Not Resolved]
  - Respiratory disorder [Not Recovered/Not Resolved]
  - Dyspnoea [Not Recovered/Not Resolved]
  - Throat irritation [Not Recovered/Not Resolved]
  - Fall [Not Recovered/Not Resolved]
  - Pain [Not Recovered/Not Resolved]
